FAERS Safety Report 10168057 (Version 1)
Quarter: 2014Q2

REPORT INFORMATION
  Report Type: Spontaneous
  Country: US (occurrence: US)
  Receive Date: 20140512
  Receipt Date: 20140512
  Transmission Date: 20141212
  Serious: No
  Sender: FDA-Public Use
  Company Number: US-PFIZER INC-2014129019

PATIENT
  Age: 70 Year
  Sex: Female
  Weight: 88.4 kg

DRUGS (3)
  1. AROMASIN [Suspect]
     Indication: BONE CANCER
     Dosage: 25 MG, 1X/DAY
     Route: 048
     Dates: start: 20140313
  2. LISINOPRIL [Concomitant]
     Indication: HYPERTENSION
     Dosage: 20 MG, DAILY
  3. AMLODIPINE [Concomitant]
     Indication: HYPERTENSION
     Dosage: 5 MG, DAILY

REACTIONS (1)
  - Tooth disorder [Unknown]
